FAERS Safety Report 10456800 (Version 1)
Quarter: 2014Q3

REPORT INFORMATION
  Report Type: Spontaneous
  Country: CN (occurrence: CN)
  Receive Date: 20140916
  Receipt Date: 20140916
  Transmission Date: 20150326
  Serious: Yes (Death, Other)
  Sender: FDA-Public Use
  Company Number: PHHY2014CN119237

PATIENT
  Age: 4 Year
  Sex: Female

DRUGS (12)
  1. METHOTREXATE [Suspect]
     Active Substance: METHOTREXATE
     Indication: PROPHYLAXIS AGAINST GRAFT VERSUS HOST DISEASE
  2. MYCOPHENOLATE MOFETIL. [Suspect]
     Active Substance: MYCOPHENOLATE MOFETIL
     Indication: PROPHYLAXIS AGAINST GRAFT VERSUS HOST DISEASE
  3. CYTARABINE. [Concomitant]
     Active Substance: CYTARABINE
  4. CICLOSPORIN [Suspect]
     Active Substance: CYCLOSPORINE
     Indication: PROPHYLAXIS AGAINST GRAFT VERSUS HOST DISEASE
  5. BUSULFAN [Concomitant]
     Active Substance: BUSULFAN
     Dosage: 3.2 MG/KG/DAY ((DAYS 6 , 7 AND 8), )
  6. ANTITHYMOCYTE IMMUNOGLOBULIN [Concomitant]
     Active Substance: THYMOCYTE IMMUNE GLOBULIN NOS
     Dosage: 2.5 MG/KG/ DAY (FROM DAY -4 TO DAY 1.)
  7. SULFAMETHOXAZOLE AND TRIMETHOPRIM [Concomitant]
     Active Substance: SULFAMETHOXAZOLE\TRIMETHOPRIM
     Indication: ANTIFUNGAL PROPHYLAXIS
     Route: 048
  8. FLUCONAZOLE. [Concomitant]
     Active Substance: FLUCONAZOLE
     Indication: ANTIFUNGAL PROPHYLAXIS
     Route: 048
  9. GAMMA//IMMUNOGLOBULIN HUMAN NORMAL [Concomitant]
     Indication: VIRAL INFECTION
     Dosage: 5 G,  (OF 2.5-5 G )
     Route: 042
  10. CYCLOPHOSPHAMIDE. [Concomitant]
     Active Substance: CYCLOPHOSPHAMIDE
     Dosage: 55 MG/KG/ DAY (DAYS  2 AND 3).
  11. GANCICLOVIR [Concomitant]
     Active Substance: GANCICLOVIR
  12. ACYCLOVIR. [Concomitant]
     Active Substance: ACYCLOVIR

REACTIONS (4)
  - Graft versus host disease in gastrointestinal tract [Unknown]
  - Cystitis haemorrhagic [Unknown]
  - Multi-organ failure [Fatal]
  - Acute graft versus host disease in skin [Unknown]
